FAERS Safety Report 9952559 (Version 2)
Quarter: 2014Q1

REPORT INFORMATION
  Report Type: Spontaneous
  Country: US (occurrence: US)
  Receive Date: 20140304
  Receipt Date: 20140304
  Transmission Date: 20141002
  Serious: Yes (Hospitalization)
  Sender: FDA-Public Use
  Company Number: US-ABBVIE-13P-163-1057598-00

PATIENT
  Age: 53 Year
  Sex: Female
  Weight: 54.93 kg

DRUGS (1)
  1. HUMIRA PEN [Suspect]
     Indication: ANKYLOSING SPONDYLITIS
     Dosage: ONE TIME DOSE
     Route: 058
     Dates: start: 20130121, end: 20130121

REACTIONS (1)
  - Disseminated tuberculosis [Recovering/Resolving]
